FAERS Safety Report 21909993 (Version 1)
Quarter: 2023Q1

REPORT INFORMATION
  Report Type: Report from Study
  Country: CA (occurrence: CA)
  Receive Date: 20230125
  Receipt Date: 20230125
  Transmission Date: 20230418
  Serious: Yes (Other)
  Sender: FDA-Public Use
  Company Number: CA-JNJFOC-20221227038

PATIENT
  Age: 53 Year
  Sex: Male
  Weight: 101.70 kg

DRUGS (1)
  1. REMICADE [Suspect]
     Active Substance: INFLIXIMAB
     Indication: Psoriasis
     Dosage: EXPIRY DATE: 31-MAR-2024
     Route: 042

REACTIONS (4)
  - Viral infection [Recovered/Resolved]
  - Influenza [Recovered/Resolved]
  - Treatment noncompliance [Unknown]
  - Incorrect drug administration rate [Unknown]

NARRATIVE: CASE EVENT DATE: 20221125
